FAERS Safety Report 24056666 (Version 2)
Quarter: 2025Q4

REPORT INFORMATION
  Report Type: Spontaneous
  Country: CN (occurrence: CN)
  Receive Date: 20240705
  Receipt Date: 20251007
  Transmission Date: 20260117
  Serious: Yes (Other)
  Sender: ELI LILLY AND COMPANY
  Company Number: CN-ELI_LILLY_AND_COMPANY-CN202406017819

PATIENT
  Sex: Female
  Weight: 50 kg

DRUGS (2)
  1. ABEMACICLIB [Suspect]
     Active Substance: ABEMACICLIB
     Indication: Breast cancer
     Dosage: 150 MG, BID
     Route: 048
     Dates: start: 20230901, end: 20240619
  2. ABEMACICLIB [Suspect]
     Active Substance: ABEMACICLIB
     Dosage: 100 MG, BID
     Route: 048
     Dates: start: 2024

REACTIONS (20)
  - Carotid artery stenosis [Unknown]
  - Multiple organ dysfunction syndrome [Unknown]
  - Anaemia [Unknown]
  - Myocardial necrosis marker increased [Unknown]
  - Blood urea increased [Unknown]
  - Blood uric acid increased [Unknown]
  - Hypometabolism [Unknown]
  - Feeding disorder [Unknown]
  - Weight decreased [Unknown]
  - Red blood cell count abnormal [Recovered/Resolved]
  - Mobility decreased [Unknown]
  - Illness [Unknown]
  - Gait inability [Unknown]
  - Platelet disorder [Recovered/Resolved]
  - Drug intolerance [Unknown]
  - Diarrhoea [Recovered/Resolved]
  - Blood creatinine increased [Unknown]
  - Fatigue [Unknown]
  - White blood cell count decreased [Recovered/Resolved]
  - Asthenia [Unknown]

NARRATIVE: CASE EVENT DATE: 20230901
